FAERS Safety Report 8183324-4 (Version None)
Quarter: 2012Q1

REPORT INFORMATION
  Report Type: 
  Country: None (occurrence: None)
  Receive Date: 20120305
  Receipt Date: 20120224
  Transmission Date: 20120608
  Serious: Yes (Hospitalization, Other)
  Sender: FDA-Public Use
  Company Number: US-BAYER-201037277NA

PATIENT
  Age: 44 Year
  Sex: Female
  Weight: 87.075 kg

DRUGS (12)
  1. IRON [Concomitant]
     Dosage: 1 DF, QD
     Route: 048
  2. MOBIC [Concomitant]
     Dosage: 7.5 MG, UNK
     Route: 048
  3. YASMIN [Suspect]
     Indication: CONTRACEPTION
  4. ALPRAZOLAM [Concomitant]
     Dosage: 1 MG, UNK
     Route: 048
     Dates: start: 20030721
  5. VALERIAN ROOT [Concomitant]
     Dosage: UNK UNK, QD
     Route: 048
  6. BENAZEPRIL HYDROCHLORIDE W/HYDROCHLOROTHIAZ. [Concomitant]
     Dosage: 1 DF, QD
     Route: 048
  7. YASMIN [Suspect]
     Indication: PREMENSTRUAL SYNDROME
     Dosage: UNK
     Route: 048
     Dates: start: 20030801, end: 20030901
  8. ALLEGRA [Concomitant]
     Dosage: 180 MG, QD
     Route: 048
  9. XENICAL [Concomitant]
     Dosage: 120 MG, UNK
  10. FLONASE [Concomitant]
     Dosage: UNK UNK, QD
     Route: 045
  11. IBUPROFEN [Concomitant]
     Dosage: UNK UNK, PRN
     Route: 048
  12. ASPIRIN [Concomitant]
     Route: 048

REACTIONS (6)
  - VENOUS INJURY [None]
  - OEDEMA [None]
  - DEEP VEIN THROMBOSIS [None]
  - PULMONARY EMBOLISM [None]
  - EMOTIONAL DISTRESS [None]
  - PAIN [None]
